FAERS Safety Report 8081015-1 (Version None)
Quarter: 2012Q1

REPORT INFORMATION
  Report Type: 
  Country: None (occurrence: None)
  Receive Date: 20120130
  Receipt Date: 20120119
  Transmission Date: 20120608
  Serious: Yes (Hospitalization, Other)
  Sender: FDA-Public Use
  Company Number: PHHY2011JP105345

PATIENT
  Age: 78 Year
  Sex: Female

DRUGS (2)
  1. MENEST [Concomitant]
     Indication: PARKINSON'S DISEASE
     Dosage: UNK
     Route: 048
     Dates: end: 20111129
  2. COMTAN [Suspect]
     Indication: PARKINSON'S DISEASE
     Dosage: 1.5 DF, DAILY
     Route: 048

REACTIONS (1)
  - ILEUS [None]
